FAERS Safety Report 15772763 (Version 1)
Quarter: 2018Q4

REPORT INFORMATION
  Report Type: Spontaneous
  Country: JP (occurrence: JP)
  Receive Date: 20181228
  Receipt Date: 20181228
  Transmission Date: 20190205
  Serious: Yes (Hospitalization, Other)
  Sender: FDA-Public Use
  Company Number: JP-SA-2018SA310088

PATIENT
  Age: 63 Year
  Sex: Male

DRUGS (10)
  1. FLUOROURACIL. [Suspect]
     Active Substance: FLUOROURACIL
     Dosage: UNK, QD
     Route: 041
     Dates: start: 201701, end: 201708
  2. IRINOTECAN [Suspect]
     Active Substance: IRINOTECAN
     Indication: METASTASIS
     Dosage: UNK UNK, QD
     Route: 041
     Dates: start: 201702, end: 201708
  3. FLUOROURACIL. [Suspect]
     Active Substance: FLUOROURACIL
     Indication: COLON CANCER
     Dosage: INJECTION
     Route: 040
     Dates: start: 201701, end: 201708
  4. PANITUMUMAB [Suspect]
     Active Substance: PANITUMUMAB
     Indication: METASTASIS
     Dosage: UNK
     Dates: start: 201702, end: 201708
  5. LEVOFOLINATE CALCIUM [Concomitant]
     Active Substance: LEVOLEUCOVORIN CALCIUM
     Dosage: UNK
     Dates: start: 201701, end: 201708
  6. ELPLAT [Suspect]
     Active Substance: OXALIPLATIN
     Indication: COLON CANCER
     Dosage: UNK UNK, QD
     Route: 041
     Dates: start: 201701, end: 201701
  7. FOLINIC ACID [Suspect]
     Active Substance: LEUCOVORIN
     Dosage: UNK UNK, UNK, CYCLICAL
  8. BEVACIZUMAB. [Suspect]
     Active Substance: BEVACIZUMAB
     Indication: METASTASIS
     Dosage: INJECTION
     Dates: start: 201701, end: 201701
  9. IRINOTECAN [Suspect]
     Active Substance: IRINOTECAN
     Indication: COLON CANCER
  10. ELPLAT [Suspect]
     Active Substance: OXALIPLATIN
     Indication: METASTASIS

REACTIONS (9)
  - Rash [Recovered/Resolved]
  - Stomatitis [Recovered/Resolved]
  - Anaemia [Unknown]
  - Decreased appetite [Recovered/Resolved]
  - Diarrhoea [Recovered/Resolved]
  - Erythema [Recovered/Resolved]
  - Nicotinic acid deficiency [Recovered/Resolved]
  - Pigmentation disorder [Recovered/Resolved]
  - Hypophagia [Recovered/Resolved]

NARRATIVE: CASE EVENT DATE: 201709
